FAERS Safety Report 20697282 (Version 15)
Quarter: 2023Q1

REPORT INFORMATION
  Report Type: Spontaneous
  Country: IN (occurrence: IN)
  Receive Date: 20220411
  Receipt Date: 20230227
  Transmission Date: 20230417
  Serious: Yes (Death, Other)
  Sender: FDA-Public Use
  Company Number: IN-PFIZER INC-2021082257

PATIENT
  Age: 72 Year
  Sex: Female
  Weight: 85.8 kg

DRUGS (10)
  1. PALBOCICLIB [Suspect]
     Active Substance: PALBOCICLIB
     Indication: Breast cancer metastatic
     Dosage: 100 MG, CYCLIC (DAILY FOR 21 DAYS THEN GAP OF 7 DAYS)
     Route: 048
     Dates: start: 20200901
  2. PALBOCICLIB [Suspect]
     Active Substance: PALBOCICLIB
     Dosage: 125 MG, CYCLIC (ONCE A DAY)
     Route: 048
     Dates: start: 202009
  3. PALBOCICLIB [Suspect]
     Active Substance: PALBOCICLIB
     Indication: Hormone receptor positive HER2 negative breast cancer
     Dosage: 75 MG, 1X/DAY FOR 21 DAYS, GAP OF 7 DAYS
  4. CUTISOFT [Concomitant]
     Dosage: 1 %, 3X/DAY
  5. LETRONAT [Concomitant]
     Dosage: 2.5 MG, 1X/DAY
  6. CALCIUM\CHOLECALCIFEROL [Concomitant]
     Active Substance: CALCIUM\CHOLECALCIFEROL
     Dosage: 500 MG, 1X/DAY
  7. OSTEOPHOS [Concomitant]
     Dosage: 70 MG, WEEKLY
  8. HEMFER-XT [Concomitant]
     Dosage: 1 DF, 2X/DAY (1 TAB TWICE DAILY FOR 3 MONTHS)
  9. CREMAFFIN [Concomitant]
     Dosage: 10 ML, AS NEEDED (10 ML ODHS SOS)
  10. UPRISE D3 [Concomitant]
     Dosage: UNK, WEEKLY

REACTIONS (18)
  - Death [Fatal]
  - Haemoglobin decreased [Recovering/Resolving]
  - Body mass index increased [Unknown]
  - White blood cell count decreased [Not Recovered/Not Resolved]
  - Neutrophil count decreased [Not Recovered/Not Resolved]
  - Blood pressure increased [Recovering/Resolving]
  - Mean cell volume increased [Not Recovered/Not Resolved]
  - Red blood cell count decreased [Unknown]
  - Haematocrit decreased [Unknown]
  - Heart rate increased [Recovering/Resolving]
  - Platelet count decreased [Not Recovered/Not Resolved]
  - Body surface area increased [Unknown]
  - Weight increased [Unknown]
  - Neoplasm progression [Unknown]
  - Osteopenia [Unknown]
  - Pulmonary mass [Unknown]
  - Monocyte percentage increased [Unknown]
  - Mean cell haemoglobin increased [Unknown]

NARRATIVE: CASE EVENT DATE: 20210120
